FAERS Safety Report 19124787 (Version 4)
Quarter: 2022Q1

REPORT INFORMATION
  Report Type: Spontaneous
  Country: US (occurrence: US)
  Receive Date: 20210412
  Receipt Date: 20220204
  Transmission Date: 20220423
  Serious: Yes (Other)
  Sender: FDA-Public Use
  Company Number: US-SEATTLE GENETICS-2020SGN03426

PATIENT
  Sex: Female

DRUGS (14)
  1. REMERON [Interacting]
     Active Substance: MIRTAZAPINE
     Indication: Insomnia
     Dosage: UNK
     Route: 048
  2. REMERON [Interacting]
     Active Substance: MIRTAZAPINE
     Indication: Decreased appetite
  3. TUKYSA [Interacting]
     Active Substance: TUCATINIB
     Indication: Breast cancer female
     Dosage: UNK
  4. TUKYSA [Interacting]
     Active Substance: TUCATINIB
     Dosage: UNK
  5. TUKYSA [Interacting]
     Active Substance: TUCATINIB
     Dosage: UNK
  6. TUKYSA [Interacting]
     Active Substance: TUCATINIB
     Dosage: UNK
  7. TUKYSA [Interacting]
     Active Substance: TUCATINIB
     Dosage: UNK
  8. TUKYSA [Interacting]
     Active Substance: TUCATINIB
     Dosage: UNK
  9. TUKYSA [Interacting]
     Active Substance: TUCATINIB
     Dosage: UNK
     Dates: start: 202112, end: 202112
  10. XELODA [Suspect]
     Active Substance: CAPECITABINE
     Indication: Breast cancer female
     Dosage: 3 DOSAGE FORM, BID
     Route: 065
  11. XELODA [Suspect]
     Active Substance: CAPECITABINE
     Dosage: 2 DOSAGE FORM, BID
  12. PROTONIX [Concomitant]
     Active Substance: PANTOPRAZOLE SODIUM
     Dosage: UNK
     Route: 065
  13. HERCEPTIN [Concomitant]
     Active Substance: TRASTUZUMAB
     Dosage: UNK
     Route: 065
  14. HERCEPTIN [Concomitant]
     Active Substance: TRASTUZUMAB
     Dosage: UNK

REACTIONS (24)
  - Macular degeneration [Unknown]
  - Transfusion [Unknown]
  - Drug interaction [Unknown]
  - Eye disorder [Unknown]
  - Gastrointestinal sounds abnormal [Unknown]
  - Muscle spasms [Unknown]
  - Sleep disorder [Unknown]
  - Emotional disorder [Unknown]
  - Laboratory test abnormal [Unknown]
  - Pulmonary mass [Unknown]
  - Adverse drug reaction [Unknown]
  - Skin erosion [Unknown]
  - Ejection fraction [Unknown]
  - Skin exfoliation [Recovering/Resolving]
  - Decreased appetite [Unknown]
  - Hypotension [Unknown]
  - Insomnia [Unknown]
  - Constipation [Unknown]
  - Diarrhoea [Unknown]
  - Fatigue [Unknown]
  - Poor quality sleep [Unknown]
  - Musculoskeletal disorder [Unknown]
  - Pulmonary mass [Unknown]
  - Neoplasm progression [Unknown]

NARRATIVE: CASE EVENT DATE: 20200801
